FAERS Safety Report 6391979-X (Version None)
Quarter: 2009Q4

REPORT INFORMATION
  Report Type: 
  Country: None (occurrence: None)
  Receive Date: 20091007
  Receipt Date: 20091002
  Transmission Date: 20100525
  Serious: Yes (Hospitalization, Other)
  Sender: FDA-Public Use
  Company Number: B0592474A

PATIENT
  Sex: Female
  Weight: 40 kg

DRUGS (7)
  1. ZOVIRAX [Suspect]
     Indication: HERPES ZOSTER
     Dosage: 200MG PER DAY
     Route: 048
     Dates: start: 20090905, end: 20090905
  2. ARASENA-A [Concomitant]
     Indication: HERPES ZOSTER
     Route: 061
     Dates: start: 20090905
  3. ADALAT CC [Concomitant]
     Indication: HYPERTENSION
     Dosage: 40MG PER DAY
     Route: 048
  4. NU-LOTAN [Concomitant]
     Indication: HYPERTENSION
     Dosage: 50MG PER DAY
     Route: 048
  5. NOVORAPID [Concomitant]
     Indication: DIABETES MELLITUS
     Route: 058
  6. DEPAS [Concomitant]
     Indication: INSOMNIA
     Dosage: .5MG PER DAY
     Route: 048
  7. GASMOTIN [Concomitant]
     Indication: DECREASED APPETITE
     Dosage: 15MG PER DAY
     Route: 048

REACTIONS (4)
  - ABASIA [None]
  - ALTERED STATE OF CONSCIOUSNESS [None]
  - DYSSTASIA [None]
  - GAIT DISTURBANCE [None]
